FAERS Safety Report 9312676 (Version 1)
Quarter: 2013Q2

REPORT INFORMATION
  Report Type: Spontaneous
  Country: US (occurrence: US)
  Receive Date: 20130528
  Receipt Date: 20130528
  Transmission Date: 20140414
  Serious: Yes (Other)
  Sender: FDA-Public Use
  Company Number: US-JNJFOC-20130513650

PATIENT
  Age: 63 Year
  Sex: Female

DRUGS (2)
  1. INFLIXIMAB, RECOMBINANT [Suspect]
     Indication: CROHN^S DISEASE
     Route: 042
  2. ADALIMUMAB [Suspect]
     Indication: CROHN^S DISEASE
     Route: 065

REACTIONS (2)
  - Paraesthesia [Recovered/Resolved]
  - Ataxia [Recovered/Resolved]
